FAERS Safety Report 13284361 (Version 1)
Quarter: 2017Q1

REPORT INFORMATION
  Report Type: Spontaneous
  Country: US (occurrence: US)
  Receive Date: 20170301
  Receipt Date: 20170301
  Transmission Date: 20170428
  Serious: No
  Sender: FDA-Public Use
  Company Number: US-INSYS THERAPEUTICS, INC-INS201609-000474

PATIENT
  Sex: Female
  Weight: 61.23 kg

DRUGS (8)
  1. SUBSYS [Suspect]
     Active Substance: FENTANYL
     Indication: MULTIPLE SCLEROSIS
  2. AMRIX [Concomitant]
     Active Substance: CYCLOBENZAPRINE HYDROCHLORIDE
     Route: 048
  3. DILAUDID [Concomitant]
     Active Substance: HYDROMORPHONE HYDROCHLORIDE
  4. MOVANTIK [Concomitant]
     Active Substance: NALOXEGOL OXALATE
     Route: 048
  5. EVZIO [Concomitant]
     Active Substance: NALOXONE HYDROCHLORIDE
  6. NORCO [Concomitant]
     Active Substance: ACETAMINOPHEN\HYDROCODONE BITARTRATE
  7. SUBSYS [Suspect]
     Active Substance: FENTANYL
     Indication: TRIGEMINAL NEURALGIA
     Route: 060
     Dates: start: 20151201
  8. SUBSYS [Suspect]
     Active Substance: FENTANYL
     Indication: PAIN
     Route: 060
     Dates: start: 20140212

REACTIONS (2)
  - Bedridden [Unknown]
  - Impaired driving ability [Unknown]
